FAERS Safety Report 9341315 (Version 1)
Quarter: 2013Q2

REPORT INFORMATION
  Report Type: Spontaneous
  Country: US (occurrence: None)
  Receive Date: 20130610
  Receipt Date: 20130610
  Transmission Date: 20140414
  Serious: Yes (Life-Threatening, Hospitalization)
  Sender: FDA-Public Use
  Company Number: None

PATIENT
  Age: 28 Year
  Sex: Male

DRUGS (2)
  1. ETHINYL ESTRADIOL\NORGESTIMATE [Suspect]
     Indication: CONTRACEPTION
     Dosage: ONE PILL
     Route: 048
     Dates: start: 20130207, end: 20130301
  2. EFFEXOR [Concomitant]

REACTIONS (1)
  - Pulmonary embolism [None]
